FAERS Safety Report 16926247 (Version 1)
Quarter: 2019Q4

REPORT INFORMATION
  Report Type: Report from Study
  Country: AU (occurrence: AU)
  Receive Date: 20191016
  Receipt Date: 20191016
  Transmission Date: 20200122
  Serious: Yes (Other)
  Sender: FDA-Public Use
  Company Number: PHHY2019AU210719

PATIENT
  Age: 1 Year
  Sex: Female
  Weight: 8.7 kg

DRUGS (3)
  1. ONASEMNOGENE ABEPARVOVEC [Suspect]
     Active Substance: ONASEMNOGENE ABEPARVOVEC
     Indication: SPINAL MUSCULAR ATROPHY
     Dosage: 2.0 X 10^13 VG/ML (49.5 ML)
     Route: 042
     Dates: start: 20190904
  2. PREDNISOLONE. [Suspect]
     Active Substance: PREDNISOLONE
     Dosage: 2 MG/KG, UNK
     Route: 065
     Dates: start: 20190911
  3. PREDNISOLONE. [Suspect]
     Active Substance: PREDNISOLONE
     Indication: PROPHYLAXIS
     Dosage: 8.6 MG, QD
     Route: 065
     Dates: start: 20190904

REACTIONS (4)
  - Vomiting [Recovering/Resolving]
  - Irritability [Unknown]
  - Thrombocytopenia [Not Recovered/Not Resolved]
  - Transaminases increased [Not Recovered/Not Resolved]

NARRATIVE: CASE EVENT DATE: 20190905
